FAERS Safety Report 8471115 (Version 4)
Quarter: 2013Q2

REPORT INFORMATION
  Report Type: Spontaneous
  Country: US (occurrence: US)
  Receive Date: 20120322
  Receipt Date: 20130515
  Transmission Date: 20140414
  Serious: Yes (Hospitalization)
  Sender: FDA-Public Use
  Company Number: US-BAYER-2012-024341

PATIENT
  Age: 49 Year
  Sex: Female
  Weight: 58.05 kg

DRUGS (2)
  1. YAZ [Suspect]
     Dosage: UNK
     Dates: start: 200806, end: 200911
  2. GLIPIZIDE [Concomitant]

REACTIONS (7)
  - Thrombosis [None]
  - Splenic infarction [None]
  - General physical health deterioration [None]
  - Pain [None]
  - Anxiety [None]
  - Emotional distress [None]
  - Anhedonia [None]
